FAERS Safety Report 21260719 (Version 1)
Quarter: 2022Q3

REPORT INFORMATION
  Report Type: Spontaneous
  Country: US (occurrence: None)
  Receive Date: 20220826
  Receipt Date: 20220826
  Transmission Date: 20221027
  Serious: Yes (Other)
  Sender: FDA-Public Use
  Company Number: US-NESTLEHEALTHSCIENCE-2022000108

PATIENT
  Age: 50 Year
  Sex: Male
  Weight: 81.6 kg

DRUGS (1)
  1. ZENPEP [Suspect]
     Active Substance: PANCRELIPASE AMYLASE\PANCRELIPASE LIPASE\PANCRELIPASE PROTEASE
     Indication: Pancreatic disorder
     Dosage: THREE TIMES A DAY WITH AND WITHOUT FOOD.
     Dates: start: 20210121, end: 20210330

REACTIONS (5)
  - Haematochezia [Recovered/Resolved]
  - Haematemesis [Recovered/Resolved]
  - Product administration error [Recovered/Resolved]
  - Intentional dose omission [Recovered/Resolved]
  - Abdominal pain upper [Not Recovered/Not Resolved]

NARRATIVE: CASE EVENT DATE: 20210101
